FAERS Safety Report 8779270 (Version 1)
Quarter: 2012Q4

REPORT INFORMATION
  Report Type: Report from Study
  Country: DE (occurrence: DE)
  Receive Date: 20120912
  Receipt Date: 20120912
  Transmission Date: 20130627
  Serious: Yes (Hospitalization)
  Sender: FDA-Public Use
  Company Number: DE-ROCHE-1121963

PATIENT
  Sex: Female

DRUGS (6)
  1. ROACTEMRA [Suspect]
     Indication: RHEUMATOID ARTHRITIS
     Route: 042
     Dates: start: 20120306, end: 20120306
  2. ADALIMUMAB [Suspect]
     Indication: RHEUMATOID ARTHRITIS
     Route: 065
     Dates: start: 201005, end: 201202
  3. PANTOPRAZOL [Concomitant]
     Route: 065
     Dates: start: 201202
  4. IBUPROFEN [Concomitant]
     Route: 065
     Dates: start: 201202
  5. CALCILAC [Concomitant]
     Route: 065
     Dates: start: 200905
  6. DEKRISTOL [Concomitant]
     Route: 065
     Dates: start: 200905

REACTIONS (2)
  - Infusion related reaction [Recovered/Resolved]
  - Hypertensive crisis [Recovered/Resolved]
